FAERS Safety Report 5928795-6 (Version None)
Quarter: 2008Q4

REPORT INFORMATION
  Report Type: 
  Country: None (occurrence: None)
  Receive Date: 20081020
  Receipt Date: 20081008
  Transmission Date: 20090506
  Serious: Yes (Hospitalization)
  Sender: FDA-Public Use
  Company Number: 2008US002740

PATIENT
  Sex: Female

DRUGS (1)
  1. PROGRAF [Suspect]
     Indication: LIVER TRANSPLANT
     Dosage: 1 MG, BID; ORAL
     Route: 048
     Dates: start: 20070101

REACTIONS (3)
  - BILE DUCT OBSTRUCTION [None]
  - BLOOD CREATININE INCREASED [None]
  - JAUNDICE [None]
